FAERS Safety Report 9328025 (Version 3)
Quarter: 2014Q1

REPORT INFORMATION
  Report Type: Spontaneous
  Country: US (occurrence: US)
  Receive Date: 20130604
  Receipt Date: 20140313
  Transmission Date: 20141002
  Serious: Yes (Other)
  Sender: FDA-Public Use
  Company Number: US-TEVA-409183USA

PATIENT
  Sex: Male

DRUGS (1)
  1. OLANZAPINE [Suspect]
     Indication: PARANOIA
     Dates: end: 201210

REACTIONS (4)
  - Rectal haemorrhage [Recovered/Resolved]
  - Nervous system disorder [Unknown]
  - Paranoia [Recovered/Resolved]
  - Delusion [Unknown]
